FAERS Safety Report 8514424-4 (Version None)
Quarter: 2012Q3

REPORT INFORMATION
  Report Type: 
  Country: None (occurrence: None)
  Receive Date: 20120717
  Receipt Date: 20120710
  Transmission Date: 20120928
  Serious: No
  Sender: FDA-Public Use
  Company Number: US-PFIZER INC-2012124903

PATIENT
  Sex: Female
  Weight: 62.5 kg

DRUGS (11)
  1. DEPAKOTE [Suspect]
     Dosage: UNK
  2. AUGMENTIN '125' [Suspect]
     Dosage: UNK
  3. LIPITOR [Suspect]
     Dosage: UNK
  4. DYNABAC [Suspect]
     Dosage: UNK
  5. TEQUIN [Suspect]
     Dosage: UNK
  6. PREVACID [Suspect]
     Dosage: UNK
  7. SINGULAIR [Suspect]
     Dosage: UNK
  8. ZANAFLEX [Suspect]
     Dosage: UNK
  9. ZYPREXA [Suspect]
     Dosage: UNK
  10. CRESTOR [Suspect]
     Dosage: UNK
  11. TOPAMAX [Suspect]
     Dosage: UNK

REACTIONS (1)
  - DRUG HYPERSENSITIVITY [None]
